FAERS Safety Report 17718220 (Version 1)
Quarter: 2020Q2

REPORT INFORMATION
  Report Type: Spontaneous
  Country: US (occurrence: US)
  Receive Date: 20200428
  Receipt Date: 20200428
  Transmission Date: 20200714
  Serious: Yes (Other)
  Sender: FDA-Public Use
  Company Number: None

PATIENT
  Age: 62 Year
  Sex: Female

DRUGS (8)
  1. DIETHYPROP [Concomitant]
  2. OLANZAPINE. [Concomitant]
     Active Substance: OLANZAPINE
  3. QUETIAPINE. [Concomitant]
     Active Substance: QUETIAPINE
  4. TIZANIDINE. [Concomitant]
     Active Substance: TIZANIDINE
  5. TRAMADOL. [Concomitant]
     Active Substance: TRAMADOL
  6. ALPRAZOLAM. [Concomitant]
     Active Substance: ALPRAZOLAM
  7. ESCITALOPRAM [Concomitant]
     Active Substance: ESCITALOPRAM OXALATE
  8. XELJANZ [Suspect]
     Active Substance: TOFACITINIB CITRATE
     Route: 048
     Dates: start: 20161011

REACTIONS (1)
  - Breast cancer [None]

NARRATIVE: CASE EVENT DATE: 202003
